FAERS Safety Report 6928781-3 (Version None)
Quarter: 2010Q3

REPORT INFORMATION
  Report Type: 
  Country: None (occurrence: None)
  Receive Date: 20100809
  Receipt Date: 20100201
  Transmission Date: 20110219
  Serious: No
  Sender: FDA-Public Use
  Company Number: US-001275

PATIENT

DRUGS (1)
  1. DEGARELIX 240 MG [Suspect]
     Dosage: (240 MG 1X SUBCUTANEOUS)
     Route: 058
     Dates: start: 20091214, end: 20091215

REACTIONS (3)
  - ABASIA [None]
  - INJECTION SITE ERYTHEMA [None]
  - PAIN [None]
